FAERS Safety Report 6133204-0 (Version None)
Quarter: 2009Q1

REPORT INFORMATION
  Report Type: 
  Country: None (occurrence: None)
  Receive Date: 20090325
  Receipt Date: 20090325
  Transmission Date: 20090719
  Serious: Yes (Life-Threatening)
  Sender: FDA-Public Use
  Company Number: None

PATIENT
  Age: 58 Year
  Sex: Female
  Weight: 86.1834 kg

DRUGS (1)
  1. ACTOPLUS MET [Suspect]
     Indication: DIABETES MELLITUS
     Dosage: 1 2 TIMES A DAY PO
     Route: 048
     Dates: start: 20070521, end: 20070523

REACTIONS (1)
  - DRUG HYPERSENSITIVITY [None]
